FAERS Safety Report 7201252-5 (Version None)
Quarter: 2010Q4

REPORT INFORMATION
  Report Type: 
  Country: None (occurrence: None)
  Receive Date: 20101227
  Receipt Date: 20101227
  Transmission Date: 20110411
  Serious: Yes (Other)
  Sender: FDA-Public Use
  Company Number: None

PATIENT
  Age: 22 Year
  Sex: Female
  Weight: 54.4316 kg

DRUGS (8)
  1. BUPROPION HCL [Suspect]
     Indication: LETHARGY
     Dosage: 75 MG ONCE A DAY PO
     Route: 048
  2. ZOLOFT [Concomitant]
  3. RITALIN [Concomitant]
  4. ZANTAC [Concomitant]
  5. WELLBUTRIN [Concomitant]
  6. VITAMIN D [Concomitant]
  7. PRE-NATAL WOMEN'S VITAMIN SUPPLEMENT [Concomitant]
  8. FISH OIL [Concomitant]

REACTIONS (6)
  - ABNORMAL BEHAVIOUR [None]
  - ANXIETY [None]
  - DEPRESSION [None]
  - LETHARGY [None]
  - MOOD ALTERED [None]
  - PRODUCT SUBSTITUTION ISSUE [None]
